FAERS Safety Report 8321961-4 (Version None)
Quarter: 2012Q2

REPORT INFORMATION
  Report Type: 
  Country: None (occurrence: None)
  Receive Date: 20120430
  Receipt Date: 20120425
  Transmission Date: 20120825
  Serious: Yes (Life-Threatening)
  Sender: FDA-Public Use
  Company Number: US-ROCHE-1008837

PATIENT
  Sex: Male

DRUGS (13)
  1. TELAPREVIR [Suspect]
     Indication: HEPATITIS C
     Route: 048
     Dates: start: 20111020, end: 20111103
  2. SOMA [Concomitant]
     Indication: PAIN
  3. PROTONIX [Concomitant]
     Indication: GASTROOESOPHAGEAL REFLUX DISEASE
     Route: 048
  4. DILAUDID [Concomitant]
     Indication: PAIN
     Route: 048
  5. DOXEPIN HCL [Concomitant]
  6. NEURONTIN [Concomitant]
     Indication: PAIN
  7. ZOFRAN [Concomitant]
     Indication: NAUSEA
  8. CYMBALTA [Concomitant]
     Indication: DEPRESSION
     Route: 048
  9. XANAX [Concomitant]
     Indication: ANXIETY
  10. NEOMYCIN SULFATE [Concomitant]
     Indication: PAIN
     Route: 048
  11. PEGASYS [Suspect]
     Indication: HEPATITIS C
  12. COPEGUS [Suspect]
     Indication: HEPATITIS C
  13. FENTANYL-100 [Concomitant]
     Dosage: Q72.

REACTIONS (3)
  - UNEVALUABLE EVENT [None]
  - RESPIRATORY DEPRESSION [None]
  - DRUG INEFFECTIVE [None]
